FAERS Safety Report 4514902-9 (Version None)
Quarter: 2004Q4

REPORT INFORMATION
  Report Type: 
  Country: None (occurrence: None)
  Receive Date: 20041129
  Receipt Date: 20041129
  Transmission Date: 20050328
  Serious: No
  Sender: FDA-Public Use
  Company Number: None

PATIENT
  Age: 61 Year
  Sex: Female
  Weight: 73.7 kg

DRUGS (7)
  1. LEVAQUIN [Suspect]
     Indication: PANCREATITIS
     Dosage: 500MG  Q24H  INTRAVENOUS
     Route: 042
     Dates: start: 20041122, end: 20041123
  2. CELEBREX [Concomitant]
  3. FOLIC ACID [Concomitant]
  4. MEPERDINE [Concomitant]
  5. MULTIVITS [Concomitant]
  6. NICOTINE [Concomitant]
  7. PROTONIX [Concomitant]

REACTIONS (3)
  - INFUSION SITE ERYTHEMA [None]
  - INJECTION SITE PRURITUS [None]
  - VEIN DISORDER [None]
